FAERS Safety Report 9375667 (Version 2)
Quarter: 2013Q3

REPORT INFORMATION
  Report Type: Spontaneous
  Country: CA (occurrence: CA)
  Receive Date: 20130628
  Receipt Date: 20130703
  Transmission Date: 20140515
  Serious: Yes (Other)
  Sender: FDA-Public Use
  Company Number: CA-MERCK-1306CAN014495

PATIENT
  Age: 58 Year
  Sex: Female
  Weight: 68.2 kg

DRUGS (11)
  1. EZETROL [Suspect]
     Indication: HYPERCHOLESTEROLAEMIA
     Dosage: 10 MG, QD
     Route: 048
     Dates: start: 20130513, end: 20130625
  2. LIPITOR [Suspect]
     Indication: PRODUCT USED FOR UNKNOWN INDICATION
     Dosage: 40 MG, UNK
  3. COVERSYL PLUS (INDAPAMIDE (+) PERINDOPRIL ARGININE) [Concomitant]
     Indication: HYPERTENSION
     Dosage: UNK
     Dates: start: 201106
  4. DIVALPROEX SODIUM [Concomitant]
     Dosage: 500 MG, BID
  5. ASPIRIN [Concomitant]
     Dosage: 325 MG, QD
  6. HYDROCHLOROTHIAZIDE [Concomitant]
     Dosage: 12.5 MG, QD
  7. ISOPTIN [Concomitant]
     Dosage: 360 MG, QD
  8. PREVACID [Concomitant]
     Dosage: 30 MG, QD
  9. REMERON [Concomitant]
     Dosage: 30 MG, UNK
  10. WELLBUTRIN [Concomitant]
     Dosage: 300 MG, UNK
  11. HYDROMORPH CONTIN [Concomitant]
     Dosage: 30 MG, QD

REACTIONS (1)
  - Hearing impaired [Recovered/Resolved]
